FAERS Safety Report 19762467 (Version 1)
Quarter: 2021Q3

REPORT INFORMATION
  Report Type: Spontaneous
  Country: CA (occurrence: CA)
  Receive Date: 20210829
  Receipt Date: 20210829
  Transmission Date: 20211014
  Serious: Yes (Life-Threatening, Hospitalization)
  Sender: FDA-Public Use
  Company Number: None

PATIENT
  Age: 30 Year
  Sex: Male
  Weight: 83.25 kg

DRUGS (4)
  1. PROTOPIC [Suspect]
     Active Substance: TACROLIMUS
  2. BETADERM [Suspect]
     Active Substance: BETAMETHASONE VALERATE
  3. ENSTILAR [Suspect]
     Active Substance: BETAMETHASONE DIPROPIONATE\CALCIPOTRIENE HYDRATE
  4. ARISTOCORT [Suspect]
     Active Substance: TRIAMCINOLONE DIACETATE
     Indication: ECZEMA
     Route: 061

REACTIONS (11)
  - Swelling face [None]
  - Pruritus [None]
  - Insomnia [None]
  - Hyperventilation [None]
  - Skin burning sensation [None]
  - Peripheral swelling [None]
  - Neuralgia [None]
  - Pyrexia [None]
  - Depression [None]
  - Steroid withdrawal syndrome [None]
  - Anxiety [None]

NARRATIVE: CASE EVENT DATE: 20190901
